FAERS Safety Report 22166999 (Version 1)
Quarter: 2023Q2

REPORT INFORMATION
  Report Type: Spontaneous
  Country: US (occurrence: None)
  Receive Date: 20230402
  Receipt Date: 20230402
  Transmission Date: 20230722
  Serious: Yes (Other)
  Sender: FDA-Public Use
  Company Number: None

PATIENT
  Age: 62 Year
  Sex: Female
  Weight: 50.4 kg

DRUGS (5)
  1. RISEDRONATE SODIUM [Suspect]
     Active Substance: RISEDRONATE SODIUM
     Indication: Osteopenia
     Dosage: OTHER QUANTITY : 1 TABLET(S);?OTHER FREQUENCY : ONCE PER MONTH;?OTHER ROUTE : TABLET  WITH CUP OF WA
     Route: 050
     Dates: start: 20220905, end: 20230313
  2. RISEDRONATE SODIUM [Suspect]
     Active Substance: RISEDRONATE SODIUM
     Indication: Osteoporosis
  3. ANASTROZOLE [Concomitant]
     Active Substance: ANASTROZOLE
  4. CALCIUM [Concomitant]
     Active Substance: CALCIUM
  5. VITAMIN D3 [Concomitant]
     Active Substance: CHOLECALCIFEROL

REACTIONS (3)
  - Arthralgia [None]
  - Tinnitus [None]
  - Diplopia [None]

NARRATIVE: CASE EVENT DATE: 20230206
